FAERS Safety Report 25690583 (Version 1)
Quarter: 2025Q3

REPORT INFORMATION
  Report Type: Spontaneous
  Country: US (occurrence: None)
  Receive Date: 20250818
  Receipt Date: 20250818
  Transmission Date: 20251020
  Serious: Yes (Other)
  Sender: FDA-CTU
  Company Number: None

PATIENT
  Sex: Male

DRUGS (11)
  1. TALTZ [Suspect]
     Active Substance: IXEKIZUMAB
     Indication: Psoriatic arthropathy
     Route: 058
     Dates: start: 20220111
  2. APAP/CODEINE TAB 300-30MG [Concomitant]
  3. AZELASTINE SPR 0.1% [Concomitant]
  4. BENZONATATE CAP 100MG [Concomitant]
  5. CHLORHEX GLU SOL 0.12% [Concomitant]
  6. CLOPIDOGREL TAB 75MG [Concomitant]
  7. DULOXETINE CAP 30MG [Concomitant]
  8. FLUCONAZOLE TAB 1 S0MG [Concomitant]
  9. FUROSEMIDE [Concomitant]
     Active Substance: FUROSEMIDE
  10. GABAPENTIN [Concomitant]
     Active Substance: GABAPENTIN
  11. HYDROCHLOROT TAB 25MG [Concomitant]

REACTIONS (1)
  - Haemorrhoids [None]
